FAERS Safety Report 9371678 (Version 2)
Quarter: 2013Q3

REPORT INFORMATION
  Report Type: Spontaneous
  Country: US (occurrence: US)
  Receive Date: 20130627
  Receipt Date: 20130805
  Transmission Date: 20140515
  Serious: Yes (Other)
  Sender: FDA-Public Use
  Company Number: US-PFIZER INC-2013191305

PATIENT
  Age: 52 Year
  Sex: Female

DRUGS (7)
  1. LYRICA [Suspect]
     Indication: FIBROMYALGIA
     Dosage: 150 MG, 3X/DAY
     Dates: start: 201201, end: 201302
  2. NORTRIPTYLINE [Suspect]
     Indication: NEUROPATHY PERIPHERAL
     Dosage: 150 MG, 1X/DAY AT BEDTIME
  3. BENADRYL [Concomitant]
     Dosage: 25 MG, 3X/DAY
  4. POTASSIUM [Concomitant]
     Dosage: UNK
  5. EFEXOR XR [Concomitant]
     Indication: BIPOLAR I DISORDER
     Dosage: 150 MG DAILY
  6. BACLOFEN [Concomitant]
     Indication: MUSCLE RELAXANT THERAPY
     Dosage: 10 MG, 3X/DAY
  7. ROPINIROLE [Concomitant]
     Indication: RESTLESS LEGS SYNDROME
     Dosage: 25 MG, UNK

REACTIONS (5)
  - Blindness transient [Recovered/Resolved]
  - Impaired driving ability [Unknown]
  - Balance disorder [Recovered/Resolved]
  - Amnesia [Recovered/Resolved]
  - Dizziness [Unknown]
